FAERS Safety Report 7929590-9 (Version None)
Quarter: 2011Q4

REPORT INFORMATION
  Report Type: 
  Country: None (occurrence: None)
  Receive Date: 20111121
  Receipt Date: 20111115
  Transmission Date: 20120403
  Serious: Yes (Hospitalization)
  Sender: FDA-Public Use
  Company Number: NL-AMGEN-NLDSP2011055027

PATIENT
  Age: 64 Year
  Sex: Male
  Weight: 112 kg

DRUGS (6)
  1. RITUXIMAB [Suspect]
     Indication: DIFFUSE LARGE B-CELL LYMPHOMA
     Dosage: 200 UNK, UNK
     Route: 042
     Dates: start: 20110824, end: 20110830
  2. PREDNISONE TAB [Suspect]
     Indication: DIFFUSE LARGE B-CELL LYMPHOMA
     Dosage: UNK
     Route: 042
     Dates: start: 20110824, end: 20110829
  3. CYCLOPHOSPHAMIDE [Suspect]
     Indication: DIFFUSE LARGE B-CELL LYMPHOMA
     Dosage: 1800 UNK, UNK
     Route: 042
     Dates: start: 20110824, end: 20110824
  4. VINCRISTINE [Suspect]
     Indication: DIFFUSE LARGE B-CELL LYMPHOMA
     Dosage: 1 UNK, UNK
     Route: 042
     Dates: start: 20110824
  5. NEUPOGEN [Suspect]
     Indication: DIFFUSE LARGE B-CELL LYMPHOMA
     Dosage: 6 UNK, UNK
     Route: 058
     Dates: start: 20110804
  6. DOXORUBICIN HCL [Suspect]
     Indication: DIFFUSE LARGE B-CELL LYMPHOMA
     Dosage: 120 UNK, UNK
     Route: 042
     Dates: start: 20110825, end: 20110825

REACTIONS (1)
  - FEBRILE NEUTROPENIA [None]
